FAERS Safety Report 4498772-3 (Version None)
Quarter: 2004Q4

REPORT INFORMATION
  Report Type: 
  Country: None (occurrence: None)
  Receive Date: 20041109
  Receipt Date: 20041109
  Transmission Date: 20050328
  Serious: Yes (Hospitalization)
  Sender: FDA-Public Use
  Company Number: None

PATIENT
  Age: 69 Year
  Sex: Male
  Weight: 56 kg

DRUGS (11)
  1. CARBOPLATIN [Suspect]
  2. ETOPOSIDE [Suspect]
     Indication: SMALL CELL LUNG CANCER STAGE UNSPECIFIED
     Dosage: VARIOUSINTRAVENOUS
     Route: 042
  3. NIACIN (NIASPAN-KOS) [Concomitant]
  4. PROPYLTHIOURACIL [Concomitant]
  5. DARBEPOETIN ALFA [Concomitant]
  6. GOSERELIN [Concomitant]
  7. BICALUTAMIDE [Concomitant]
  8. METOPROLOL TARTRATE [Concomitant]
  9. DARBEPOETIN ALFA [Concomitant]
  10. LISINOPRIL [Concomitant]
  11. ALBUTEROL [Concomitant]

REACTIONS (2)
  - PANCYTOPENIA [None]
  - RENAL FAILURE [None]
